FAERS Safety Report 8852507 (Version 2)
Quarter: 2012Q4

REPORT INFORMATION
  Report Type: Report from Study
  Country: US (occurrence: US)
  Receive Date: 20121022
  Receipt Date: 20121106
  Transmission Date: 20130627
  Serious: Yes (Hospitalization, Other)
  Sender: FDA-Public Use
  Company Number: US-BRISTOL-MYERS SQUIBB COMPANY-16914525

PATIENT
  Age: 40 Year
  Sex: Female
  Weight: 91 kg

DRUGS (14)
  1. IPILIMUMAB [Suspect]
     Indication: MALIGNANT MELANOMA
     Dosage: 10mg/kg
     Route: 042
     Dates: start: 20120726
  2. DIOVAN HCT [Concomitant]
     Dates: start: 20120405, end: 20120826
  3. SYNTHROID [Concomitant]
     Dosage: morning
     Route: 042
     Dates: start: 2009
  4. PREVACID [Concomitant]
     Dates: start: 2007
  5. EQUATE [Concomitant]
     Indication: DIARRHOEA
     Dates: start: 2005
  6. SIQUIL [Concomitant]
     Dates: start: 20120719, end: 20120815
  7. CIPROFLOXACIN [Concomitant]
     Route: 042
  8. PEPCID [Concomitant]
     Route: 040
  9. LACTULOSE [Concomitant]
     Route: 048
  10. SOLU-MEDROL [Concomitant]
     Route: 042
  11. REGLAN [Concomitant]
     Dosage: AC and HS
     Route: 042
  12. OLANZAPINE [Concomitant]
     Route: 048
  13. PANTOPRAZOLE [Concomitant]
     Route: 042
  14. TRAZODONE HCL [Concomitant]
     Dosage: bedtime

REACTIONS (6)
  - Colitis [Unknown]
  - Back pain [Unknown]
  - Nausea [Recovering/Resolving]
  - Vomiting [Recovering/Resolving]
  - Impaired gastric emptying [Recovering/Resolving]
  - Oesophageal achalasia [Recovering/Resolving]
